FAERS Safety Report 5128250-X (Version None)
Quarter: 2006Q4

REPORT INFORMATION
  Report Type: 
  Country: None (occurrence: None)
  Receive Date: 20061011
  Receipt Date: 20060921
  Transmission Date: 20070319
  Serious: Yes (Death)
  Sender: FDA-Public Use
  Company Number: 2006RR-03848

PATIENT
  Age: 55 Year
  Sex: Female

DRUGS (2)
  1. CLARITHROMYCIN [Suspect]
     Indication: PNEUMONIA BACTERIAL
     Dosage: 250 MG, BID, ORAL
     Route: 048
  2. COLCHICINE [Suspect]
     Indication: GOUT
     Dosage: 0.5MG TID PO
     Route: 048

REACTIONS (5)
  - BONE MARROW FAILURE [None]
  - BONE MARROW TOXICITY [None]
  - DRUG INTERACTION [None]
  - DRUG TOXICITY [None]
  - FEBRILE NEUTROPENIA [None]
